FAERS Safety Report 6180437 (Version 2)
Quarter: 2019Q1

REPORT INFORMATION
  Report Type: Spontaneous
  Country: FR (occurrence: FR)
  Receive Date: 20061206
  Receipt Date: 20190130
  Transmission Date: 20190418
  Serious: Yes (Hospitalization, Other)
  Sender: FDA-Public Use
  Company Number: FR-GILEAD-2006-0010712

PATIENT
  Age: 37 Year
  Sex: Male
  Weight: 57 kg

DRUGS (8)
  1. TELZIR [Suspect]
     Active Substance: FOSAMPRENAVIR CALCIUM
     Indication: HIV INFECTION
     Route: 048
     Dates: end: 20060419
  2. TELZIR [Suspect]
     Active Substance: FOSAMPRENAVIR CALCIUM
     Route: 048
     Dates: end: 20060419
  3. NORVIR [Suspect]
     Active Substance: RITONAVIR
     Indication: HIV INFECTION
     Route: 048
     Dates: end: 20060419
  4. EMTRIVA [Suspect]
     Active Substance: EMTRICITABINE
     Route: 048
     Dates: end: 20060419
  5. VIREAD [Suspect]
     Active Substance: TENOFOVIR DISOPROXIL FUMARATE
     Indication: HIV INFECTION
     Route: 048
     Dates: end: 20060419
  6. VIREAD [Suspect]
     Active Substance: TENOFOVIR DISOPROXIL FUMARATE
     Route: 048
     Dates: end: 20060419
  7. NORVIR [Suspect]
     Active Substance: RITONAVIR
     Route: 048
     Dates: end: 20060419
  8. EMTRIVA [Suspect]
     Active Substance: EMTRICITABINE
     Indication: HIV INFECTION
     Route: 048
     Dates: end: 20060419

REACTIONS (1)
  - Pancreatitis [Recovered/Resolved]

NARRATIVE: CASE EVENT DATE: 20060414
